FAERS Safety Report 15696607 (Version 1)
Quarter: 2018Q4

REPORT INFORMATION
  Report Type: Spontaneous
  Country: US (occurrence: US)
  Receive Date: 20181206
  Receipt Date: 20181206
  Transmission Date: 20190205
  Serious: No
  Sender: FDA-Public Use
  Company Number: US-SUPERNUS PHARMACEUTICALS, INC.-2018SUP00255

PATIENT
  Age: 25 Year
  Sex: Female
  Weight: 126.98 kg

DRUGS (5)
  1. TOPAMAX [Concomitant]
     Active Substance: TOPIRAMATE
  2. OXTELLAR XR [Suspect]
     Active Substance: OXCARBAZEPINE
     Indication: EPILEPSY
     Dosage: 300 MG, 1X/DAY
     Route: 048
     Dates: start: 2018, end: 201808
  3. OXTELLAR XR [Suspect]
     Active Substance: OXCARBAZEPINE
     Dosage: 600 MG, 1X/DAY
     Route: 048
     Dates: start: 201808, end: 201808
  4. UNSPECIFIED THYROID MEDICATION [Concomitant]
     Active Substance: UNSPECIFIED INGREDIENT
  5. OXTELLAR XR [Suspect]
     Active Substance: OXCARBAZEPINE
     Dosage: LOWERED HER DOSE ^LITTLE BY LITTLE^ AS SHE STOPPED IT
     Route: 048
     Dates: start: 201808, end: 20180817

REACTIONS (2)
  - Throat irritation [Recovering/Resolving]
  - Peripheral swelling [Recovering/Resolving]

NARRATIVE: CASE EVENT DATE: 201808
